FAERS Safety Report 19094010 (Version 1)
Quarter: 2021Q2

REPORT INFORMATION
  Report Type: Spontaneous
  Country: CN (occurrence: CN)
  Receive Date: 20210405
  Receipt Date: 20210405
  Transmission Date: 20210717
  Serious: Yes (Hospitalization)
  Sender: FDA-Public Use
  Company Number: CN-ASTRAZENECA-2021A256996

PATIENT
  Age: 50 Year
  Sex: Male

DRUGS (1)
  1. DAPAGLIFLOZIN. [Suspect]
     Active Substance: DAPAGLIFLOZIN
     Dosage: 1 TABLET, 1 PER DAY, IN THE MORNING
     Route: 048
     Dates: start: 20210324

REACTIONS (5)
  - Hypersensitivity [Unknown]
  - Blister [Unknown]
  - Pustule [Unknown]
  - Oedema [Unknown]
  - Pruritus [Unknown]

NARRATIVE: CASE EVENT DATE: 20210325
